FAERS Safety Report 23844493 (Version 4)
Quarter: 2024Q3

REPORT INFORMATION
  Report Type: Report from Study
  Country: JP (occurrence: JP)
  Receive Date: 20240510
  Receipt Date: 20240719
  Transmission Date: 20241017
  Serious: No
  Sender: RADIUS PHARM
  Company Number: JP-RADIUS HEALTH INC.-2024JP003209

PATIENT
  Age: 74 Year
  Sex: Female

DRUGS (1)
  1. ABALOPARATIDE [Suspect]
     Active Substance: ABALOPARATIDE
     Indication: Osteoporosis
     Dosage: 80 MICROGRAM, QD
     Route: 058
     Dates: start: 20231031

REACTIONS (4)
  - Urine abnormality [Unknown]
  - Bladder discomfort [Unknown]
  - Dizziness [Unknown]
  - Decreased appetite [Unknown]
